FAERS Safety Report 8338739-8 (Version None)
Quarter: 2012Q2

REPORT INFORMATION
  Report Type: 
  Country: None (occurrence: None)
  Receive Date: 20120504
  Receipt Date: 20120420
  Transmission Date: 20120825
  Serious: Yes (Hospitalization, Other)
  Sender: FDA-Public Use
  Company Number: US-ACTELION-A-US2006-13397

PATIENT

DRUGS (1)
  1. TRACLEER [Suspect]
     Indication: PULMONARY ARTERIAL HYPERTENSION
     Route: 048
     Dates: start: 20060401

REACTIONS (15)
  - PNEUMONIA [None]
  - CATHETERISATION CARDIAC [None]
  - BLOOD ELECTROLYTES DECREASED [None]
  - ROAD TRAFFIC ACCIDENT [None]
  - FATIGUE [None]
  - HYPOAESTHESIA [None]
  - BLOOD POTASSIUM DECREASED [None]
  - MUSCULOSKELETAL DISCOMFORT [None]
  - MYALGIA [None]
  - OEDEMA PERIPHERAL [None]
  - DYSPNOEA [None]
  - RESPIRATORY TRACT INFECTION [None]
  - SPINAL COLUMN INJURY [None]
  - MUSCLE SPASMS [None]
  - ASTHENIA [None]
